FAERS Safety Report 4441894-3 (Version None)
Quarter: 2004Q3

REPORT INFORMATION
  Report Type: 
  Country: None (occurrence: None)
  Receive Date: 20040901
  Receipt Date: 20040818
  Transmission Date: 20050211
  Serious: Yes (Other)
  Sender: FDA-Public Use
  Company Number: K200401269

PATIENT
  Sex: Female

DRUGS (1)
  1. NORDETTE-21 [Suspect]
     Dosage: ORAL
     Route: 048
     Dates: start: 19940101

REACTIONS (1)
  - FOCAL NODULAR HYPERPLASIA [None]
